FAERS Safety Report 8716378 (Version 2)
Quarter: 2013Q4

REPORT INFORMATION
  Report Type: Spontaneous
  Country: US (occurrence: US)
  Receive Date: 20120810
  Receipt Date: 20131106
  Transmission Date: 20140711
  Serious: Yes (Other)
  Sender: FDA-Public Use
  Company Number: US-009507513-1207USA011529

PATIENT
  Age: 53 Year
  Sex: Male

DRUGS (2)
  1. VICTRELIS [Suspect]
     Dosage: UNK MG, UNK
     Route: 048
  2. PEGINTRON [Suspect]

REACTIONS (3)
  - Leukopenia [Unknown]
  - Neutropenia [Unknown]
  - Anaemia [Unknown]
